FAERS Safety Report 13299466 (Version 3)
Quarter: 2017Q2

REPORT INFORMATION
  Report Type: Spontaneous
  Country: SN (occurrence: SN)
  Receive Date: 20170306
  Receipt Date: 20170407
  Transmission Date: 20170830
  Serious: Yes (Death, Hospitalization, Other)
  Sender: FDA-Public Use
  Company Number: SN-PFIZER INC-2017096440

PATIENT
  Age: 60 Year
  Sex: Female

DRUGS (1)
  1. SUTENT [Suspect]
     Active Substance: SUNITINIB MALATE
     Indication: RENAL CELL CARCINOMA
     Dosage: 50 MG, CYCLIC (50MG 1X/DAY 4 WEEKS WITH A 2-WEEK BREAK BETWEEN EACH COURSE)
     Route: 048
     Dates: start: 20160624, end: 20170302

REACTIONS (3)
  - Death [Fatal]
  - Deep vein thrombosis [Unknown]
  - Electrolyte imbalance [Unknown]

NARRATIVE: CASE EVENT DATE: 2017
